FAERS Safety Report 8965714 (Version 1)
Quarter: 2012Q4

REPORT INFORMATION
  Report Type: Spontaneous
  Country: IN (occurrence: None)
  Receive Date: 20121206
  Receipt Date: 20121206
  Transmission Date: 20130627
  Serious: Yes (Other)
  Sender: FDA-Public Use
  Company Number: IN-1195550

PATIENT
  Age: 6 Year
  Sex: Female

DRUGS (3)
  1. PREDNISOLONE ACETATE [Suspect]
     Indication: POSTOPERATIVE CARE
     Route: 047
  2. CEFAZOLIN SODIUM [Concomitant]
  3. TOBRAMYCIN [Concomitant]

REACTIONS (2)
  - Corneal epithelium defect [None]
  - Corneal transplant [None]
